FAERS Safety Report 5969643-8 (Version None)
Quarter: 2008Q4

REPORT INFORMATION
  Report Type: 
  Country: None (occurrence: None)
  Receive Date: 20081126
  Receipt Date: 20081121
  Transmission Date: 20090506
  Serious: Yes (Hospitalization, Other)
  Sender: FDA-Public Use
  Company Number: US-WATSON-2008-06348

PATIENT
  Sex: Female
  Weight: 79.4 kg

DRUGS (3)
  1. HYDROCODONE BITARTRATE/ACETAMINOPHEN UNKNOWN STRENGTH (WATSON) [Suspect]
     Indication: PAIN
     Dosage: 1 TABLET, QID
     Route: 048
     Dates: end: 20071101
  2. FENTANYL [Suspect]
     Indication: PAIN
     Dosage: 1 PATCH, Q 3 DAYS
     Route: 062
     Dates: start: 20070701, end: 20071030
  3. ALPRAZOLAM (ACTAVIS) [Suspect]
     Indication: ANXIETY
     Dosage: 1 MG, TID
     Route: 048
     Dates: start: 19980101

REACTIONS (6)
  - ACCIDENTAL OVERDOSE [None]
  - AGGRESSION [None]
  - CEREBROVASCULAR ACCIDENT [None]
  - FALL [None]
  - HEMIPARESIS [None]
  - MEMORY IMPAIRMENT [None]
